FAERS Safety Report 4847562-8 (Version None)
Quarter: 2005Q4

REPORT INFORMATION
  Report Type: 
  Country: None (occurrence: None)
  Receive Date: 20051207
  Receipt Date: 20051201
  Transmission Date: 20060501
  Serious: Yes (Other)
  Sender: FDA-Public Use
  Company Number: DK-AVENTIS-200520664GDDC

PATIENT
  Age: 19 Year
  Sex: Female

DRUGS (3)
  1. DESMOPRESSIN [Suspect]
     Indication: ENURESIS
     Route: 048
     Dates: start: 20050920, end: 20050927
  2. DESMOPRESSIN [Suspect]
     Route: 048
     Dates: start: 20050928, end: 20051011
  3. HORMONAL CONTRACEPTIVES FOR SYSTEMIC USE [Concomitant]
     Indication: CONTRACEPTION

REACTIONS (1)
  - PULMONARY EMBOLISM [None]
